FAERS Safety Report 6744910-9 (Version None)
Quarter: 2010Q2

REPORT INFORMATION
  Report Type: 
  Country: None (occurrence: None)
  Receive Date: 20100527
  Receipt Date: 20100519
  Transmission Date: 20101027
  Serious: Yes (Hospitalization)
  Sender: FDA-Public Use
  Company Number: BE-ABBOTT-10P-013-0633635-00

PATIENT
  Sex: Female
  Weight: 92 kg

DRUGS (3)
  1. HUMIRA [Suspect]
     Indication: CROHN'S DISEASE
     Route: 058
     Dates: start: 20080415
  2. AZATHIOPRINE SODIUM [Concomitant]
     Indication: CROHN'S DISEASE
     Dates: start: 20040302
  3. AZATHIOPRINE SODIUM [Concomitant]

REACTIONS (1)
  - INTESTINAL OBSTRUCTION [None]
